FAERS Safety Report 7654858-3 (Version None)
Quarter: 2011Q3

REPORT INFORMATION
  Report Type: 
  Country: None (occurrence: None)
  Receive Date: 20110804
  Receipt Date: 20110725
  Transmission Date: 20111222
  Serious: Yes (Hospitalization, Other)
  Sender: FDA-Public Use
  Company Number: US-BAYER-201039254NA

PATIENT
  Age: 44 Year
  Sex: Female
  Weight: 74.83 kg

DRUGS (7)
  1. ATENOLOL [Concomitant]
  2. ALBUTEROL SULFATE AUTOHALER [Concomitant]
  3. PROTONIX [Concomitant]
  4. ALLEGRA [Concomitant]
  5. MACROBID [Concomitant]
  6. YASMIN [Suspect]
     Dosage: UNK
     Route: 048
     Dates: start: 20031001, end: 20060101
  7. DITROPAN XL [Concomitant]

REACTIONS (2)
  - CHOLECYSTITIS CHRONIC [None]
  - GALLBLADDER NON-FUNCTIONING [None]
